FAERS Safety Report 9995229 (Version 3)
Quarter: 2017Q4

REPORT INFORMATION
  Report Type: Report from Study
  Country: US (occurrence: US)
  Receive Date: 20140311
  Receipt Date: 20171113
  Transmission Date: 20180321
  Serious: Yes (Other)
  Sender: FDA-Public Use
  Company Number: US-ROCHE-1356101

PATIENT
  Age: 7 Year
  Sex: Female
  Weight: 38.6 kg

DRUGS (11)
  1. RITALIN [Concomitant]
     Active Substance: METHYLPHENIDATE HYDROCHLORIDE
     Indication: ATTENTION DEFICIT/HYPERACTIVITY DISORDER
     Dosage: 5 TO 15 MG PRN IN THE AFTERNOON
     Route: 048
  2. RITALIN [Concomitant]
     Active Substance: METHYLPHENIDATE HYDROCHLORIDE
     Route: 048
  3. NUTROPIN AQ [Suspect]
     Active Substance: SOMATROPIN
     Indication: TURNER^S SYNDROME
     Route: 058
     Dates: start: 201309
  4. FOCALIN (UNITED STATES) [Concomitant]
     Route: 065
  5. MOTRIN [Concomitant]
     Active Substance: IBUPROFEN
     Route: 065
  6. MELATONIN [Concomitant]
     Active Substance: MELATONIN
  7. TENORMIN [Concomitant]
     Active Substance: ATENOLOL
     Route: 048
  8. NUTROPIN AQ [Suspect]
     Active Substance: SOMATROPIN
     Route: 058
  9. OXANDRIN [Concomitant]
     Active Substance: OXANDROLONE
     Route: 065
  10. NUTROPIN AQ [Suspect]
     Active Substance: SOMATROPIN
     Indication: GROWTH HORMONE DEFICIENCY
     Route: 058
  11. VALERIAN [Concomitant]
     Active Substance: VALERIAN
     Route: 065

REACTIONS (22)
  - Abdominal pain [Unknown]
  - Melanocytic naevus [Not Recovered/Not Resolved]
  - Oedema peripheral [Unknown]
  - Otitis media acute [Not Recovered/Not Resolved]
  - Blood triglycerides increased [Unknown]
  - High density lipoprotein decreased [Unknown]
  - Initial insomnia [Unknown]
  - Deafness [Not Recovered/Not Resolved]
  - Anxiety [Unknown]
  - Pruritus genital [Unknown]
  - Diarrhoea [Unknown]
  - Eyelid ptosis [Not Recovered/Not Resolved]
  - Thyroxine decreased [Unknown]
  - Cholesteatoma [Unknown]
  - Dry skin [Unknown]
  - Vitamin D deficiency [Unknown]
  - Keratosis pilaris [Not Recovered/Not Resolved]
  - Insulin-like growth factor increased [Unknown]
  - Weight increased [Unknown]
  - Kyphosis [Unknown]
  - Blood gonadotrophin increased [Unknown]
  - Ear haemorrhage [Unknown]

NARRATIVE: CASE EVENT DATE: 201402
